FAERS Safety Report 24040726 (Version 2)
Quarter: 2024Q3

REPORT INFORMATION
  Report Type: Spontaneous
  Country: US (occurrence: US)
  Receive Date: 20240702
  Receipt Date: 20240806
  Transmission Date: 20241017
  Serious: Yes (Other)
  Sender: SUNOVION
  Company Number: US-MYOVANT SCIENCES GMBH-2024MYSCI0601138

PATIENT

DRUGS (3)
  1. MYFEMBREE [Suspect]
     Active Substance: ESTRADIOL HEMIHYDRATE\NORETHINDRONE ACETATE\RELUGOLIX
     Indication: Endometriosis
     Dosage: 40-1-0.5 MG, TPO
     Route: 048
     Dates: start: 20240618, end: 20240621
  2. SLYND [Concomitant]
     Active Substance: DROSPIRENONE
     Indication: Muscle spasms
     Dosage: 4 MG, TPO, QD
     Route: 048
     Dates: start: 20240516, end: 20240618
  3. SLYND [Concomitant]
     Active Substance: DROSPIRENONE
     Indication: Heavy menstrual bleeding

REACTIONS (7)
  - Blindness [Unknown]
  - Dysmenorrhoea [Not Recovered/Not Resolved]
  - Muscle spasms [Unknown]
  - Intermenstrual bleeding [Unknown]
  - Headache [Recovering/Resolving]
  - Intraocular pressure test abnormal [Unknown]
  - Visual impairment [Unknown]

NARRATIVE: CASE EVENT DATE: 20240618
